FAERS Safety Report 15302376 (Version 1)
Quarter: 2018Q3

REPORT INFORMATION
  Report Type: Spontaneous
  Country: FR (occurrence: FR)
  Receive Date: 20180821
  Receipt Date: 20180821
  Transmission Date: 20181010
  Serious: Yes (Death, Hospitalization)
  Sender: FDA-Public Use
  Company Number: FR-TEVA-2018-FR-945324

PATIENT
  Age: 73 Year
  Sex: Male

DRUGS (5)
  1. TAZOBACTAM [Suspect]
     Active Substance: TAZOBACTAM
     Indication: CHEST X-RAY ABNORMAL
     Dosage: 500 MILLIGRAM DAILY;
     Route: 042
     Dates: start: 20171229, end: 20180108
  2. CIPROFLOXACINE [Suspect]
     Active Substance: CIPROFLOXACIN
     Indication: CHEST X-RAY ABNORMAL
     Dosage: 200 MILLIGRAM DAILY; 200 MG/100 ML
     Route: 042
     Dates: start: 20171229, end: 20180108
  3. PREVISCAN 20 MG, COMPRIM? S?CABLE [Suspect]
     Active Substance: FLUINDIONE
     Indication: PULMONARY EMBOLISM
     Dosage: 10 MILLIGRAM DAILY;
     Route: 048
     Dates: start: 2011, end: 20180101
  4. PIPERACILLINE BASE [Suspect]
     Active Substance: PIPERACILLIN SODIUM
     Indication: CHEST X-RAY ABNORMAL
     Dosage: 4 GRAM DAILY;
     Route: 042
     Dates: start: 20171229, end: 20180108
  5. CALCIPARINE [Suspect]
     Active Substance: HEPARIN CALCIUM
     Indication: PULMONARY EMBOLISM
     Dosage: 5000 IU (INTERNATIONAL UNIT) DAILY;
     Route: 058
     Dates: start: 20180103, end: 20180109

REACTIONS (4)
  - International normalised ratio increased [Recovered/Resolved]
  - Haemorrhagic anaemia [Recovered/Resolved]
  - Accidental overdose [Recovered/Resolved]
  - Melaena [Recovered/Resolved]

NARRATIVE: CASE EVENT DATE: 20180103
